FAERS Safety Report 7690185-6 (Version None)
Quarter: 2011Q3

REPORT INFORMATION
  Report Type: 
  Country: None (occurrence: None)
  Receive Date: 20110811
  Receipt Date: 20110728
  Transmission Date: 20111222
  Serious: Yes (Other)
  Sender: FDA-Public Use
  Company Number: 2011AM004611

PATIENT
  Age: 53 Year
  Sex: Female
  Weight: 95.2554 kg

DRUGS (13)
  1. SYMILNPEN 120 (PARMILINTIDE ACETATE) PEN-INJECTOR (1.0 MG/ML) [Suspect]
     Indication: TYPE 2 DIABETES MELLITUS
     Dosage: 120 MCG;BID;SC
     Route: 058
     Dates: start: 20110601, end: 20110726
  2. COREG [Concomitant]
  3. SYMLINPEN 60 (PARMLINTIDE ACETATE) PEN-INJECTOR (1.0 MG/ML) [Suspect]
  4. MELOXICAM [Concomitant]
  5. SYMLINPEN 60 (PARMLINTIDE ACETATE) PEN-INJECTOR (1.0 MG/ML) [Suspect]
  6. SYMLINPEN 60 (PARMLINTIDE ACETATE) PEN-INJECTOR (1.0 MG/ML) [Suspect]
     Indication: TYPE 2 DIABETES MELLITUS
     Dosage: 60 MCG; SC; 45 MCG;QD;SC; 30 MCG;QD;SC; 15 MCG;QD;SC
     Route: 058
     Dates: start: 20110601, end: 20110601
  7. SYMLINPEN 60 (PARMLINTIDE ACETATE) PEN-INJECTOR (1.0 MG/ML) [Suspect]
     Indication: TYPE 2 DIABETES MELLITUS
     Dosage: 60 MCG; SC; 45 MCG;QD;SC; 30 MCG;QD;SC; 15 MCG;QD;SC
     Route: 058
     Dates: start: 20110601, end: 20110601
  8. SYMLINPEN 60 (PARMLINTIDE ACETATE) PEN-INJECTOR (1.0 MG/ML) [Suspect]
     Indication: TYPE 2 DIABETES MELLITUS
     Dosage: 60 MCG; SC; 45 MCG;QD;SC; 30 MCG;QD;SC; 15 MCG;QD;SC
     Route: 058
     Dates: start: 20110601, end: 20110601
  9. SYMLINPEN 60 (PARMLINTIDE ACETATE) PEN-INJECTOR (1.0 MG/ML) [Suspect]
     Indication: TYPE 2 DIABETES MELLITUS
     Dosage: 60 MCG; SC; 45 MCG;QD;SC; 30 MCG;QD;SC; 15 MCG;QD;SC
     Route: 058
     Dates: start: 20110530, end: 20110531
  10. SYMLINPEN 60 (PARMLINTIDE ACETATE) PEN-INJECTOR (1.0 MG/ML) [Suspect]
  11. METFORMIN HCL [Concomitant]
  12. NOVOLIN 70/30 [Concomitant]
  13. LISINOPRIL [Concomitant]

REACTIONS (26)
  - BLOOD GLUCOSE INCREASED [None]
  - ASTHENIA [None]
  - PERSONALITY CHANGE [None]
  - DEPRESSION [None]
  - MEMORY IMPAIRMENT [None]
  - IMPAIRED DRIVING ABILITY [None]
  - ABDOMINAL DISCOMFORT [None]
  - MOOD ALTERED [None]
  - CONSTIPATION [None]
  - FATIGUE [None]
  - HEADACHE [None]
  - WEIGHT DECREASED [None]
  - HEMIPARESIS [None]
  - FALL [None]
  - URINE OUTPUT DECREASED [None]
  - INFLUENZA LIKE ILLNESS [None]
  - DIARRHOEA [None]
  - CONFUSIONAL STATE [None]
  - FEELING ABNORMAL [None]
  - LOSS OF CONSCIOUSNESS [None]
  - FOOD CRAVING [None]
  - WEIGHT INCREASED [None]
  - DIZZINESS [None]
  - TRANSIENT ISCHAEMIC ATTACK [None]
  - HYPERSOMNIA [None]
  - CRYING [None]
